FAERS Safety Report 13716497 (Version 1)
Quarter: 2017Q3

REPORT INFORMATION
  Report Type: Spontaneous
  Country: US (occurrence: US)
  Receive Date: 20170703
  Receipt Date: 20170703
  Transmission Date: 20171127
  Serious: Yes (Hospitalization)
  Sender: FDA-Public Use
  Company Number: None

PATIENT
  Age: 66 Year
  Sex: Male
  Weight: 109.77 kg

DRUGS (2)
  1. ASPIRIN. [Suspect]
     Active Substance: ASPIRIN
     Indication: DIABETES MELLITUS
     Route: 048
     Dates: start: 20160405
  2. APIXABAN [Suspect]
     Active Substance: APIXABAN
     Indication: ATRIAL FIBRILLATION
     Route: 048
     Dates: start: 20160405

REACTIONS (8)
  - Diarrhoea [None]
  - Constipation [None]
  - Confusional state [None]
  - Nausea [None]
  - Depression [None]
  - Anaemia [None]
  - Vomiting [None]
  - Melaena [None]

NARRATIVE: CASE EVENT DATE: 20170308
